FAERS Safety Report 13181077 (Version 1)
Quarter: 2017Q1

REPORT INFORMATION
  Report Type: Spontaneous
  Country: US (occurrence: US)
  Receive Date: 20170202
  Receipt Date: 20170202
  Transmission Date: 20170428
  Serious: No
  Sender: FDA-Public Use
  Company Number: US-SMITH AND NEPHEW, INC-2016SMT00634

PATIENT
  Sex: Female
  Weight: 66.21 kg

DRUGS (10)
  1. LEVOTHYROXINE. [Concomitant]
     Active Substance: LEVOTHYROXINE
  2. AMLODIPINE [Concomitant]
     Active Substance: AMLODIPINE BESYLATE
     Dosage: 2.5 MG, 1X/DAY
  3. REGRANEX [Suspect]
     Active Substance: BECAPLERMIN
     Dosage: UNK, EVERY 48 HOURS
     Route: 061
     Dates: start: 2015, end: 201607
  4. VITAMIN C [Concomitant]
     Active Substance: ASCORBIC ACID
  5. NEXIUM [Concomitant]
     Active Substance: ESOMEPRAZOLE MAGNESIUM
  6. LOSARTAN. [Concomitant]
     Active Substance: LOSARTAN
  7. VITAMINS NOS [Concomitant]
     Active Substance: VITAMINS
  8. ELIQUIS [Concomitant]
     Active Substance: APIXABAN
     Dosage: 2.5 MG, 2X/DAY
  9. PROBIOTIC [Concomitant]
     Active Substance: PROBIOTICS NOS
  10. REGRANEX [Suspect]
     Active Substance: BECAPLERMIN
     Indication: WOUND
     Dosage: UNK UNK, EVERY 72 HOURS
     Route: 061
     Dates: start: 201607

REACTIONS (4)
  - Inappropriate schedule of drug administration [Unknown]
  - Insomnia [Unknown]
  - Off label use [Unknown]
  - Application site pain [Unknown]

NARRATIVE: CASE EVENT DATE: 2015
